FAERS Safety Report 19466551 (Version 3)
Quarter: 2021Q4

REPORT INFORMATION
  Report Type: Report from Study
  Country: US (occurrence: US)
  Receive Date: 20210628
  Receipt Date: 20211227
  Transmission Date: 20220303
  Serious: Yes (Other)
  Sender: FDA-Public Use
  Company Number: US-AMGEN-USACT2021094877

PATIENT
  Age: 43 Year
  Sex: Female
  Weight: 196.6 kg

DRUGS (2)
  1. DENOSUMAB [Suspect]
     Active Substance: DENOSUMAB
     Indication: Metastatic malignant melanoma
     Dosage: 120 MILLIGRAM, QMO
     Route: 058
     Dates: start: 20200821, end: 20210618
  2. NIVOLUMAB [Suspect]
     Active Substance: NIVOLUMAB
     Indication: Metastatic malignant melanoma
     Dosage: 480 MILLIGRAM, QMO
     Route: 042
     Dates: start: 20200911, end: 20210618

REACTIONS (2)
  - Rash maculo-papular [Recovering/Resolving]
  - Syncope [Unknown]

NARRATIVE: CASE EVENT DATE: 20210618
